FAERS Safety Report 7308911-4 (Version None)
Quarter: 2011Q1

REPORT INFORMATION
  Report Type: 
  Country: None (occurrence: None)
  Receive Date: 20110223
  Receipt Date: 20100405
  Transmission Date: 20110831
  Serious: No
  Sender: FDA-Public Use
  Company Number: US-NOVOPROD-305728

PATIENT
  Sex: Male
  Weight: 113.6 kg

DRUGS (5)
  1. NOVOSEVEN RT [Suspect]
     Dosage: 20MG, 10MG 2 HRS LATER, THEN 10MG 2 HRS LATER
     Route: 058
     Dates: start: 20030101
  2. CLARITIN                           /00917501/ [Concomitant]
     Indication: PRODUCT USED FOR UNKNOWN INDICATION
     Dosage: UNK
     Route: 048
  3. NOVOSEVEN RT [Suspect]
  4. NOVOSEVEN RT [Suspect]
     Indication: HAEMOPHILIA A WITH ANTI FACTOR VIII
     Dosage: 20MG, 10MG 2 HRS LATER, THEN 10MG 2 HRS LATER
     Route: 058
     Dates: start: 20030101
  5. NOVOSEVEN RT [Suspect]
     Dosage: 10 MG
     Route: 058
     Dates: start: 20100331

REACTIONS (1)
  - HYPERSENSITIVITY [None]
